FAERS Safety Report 13343667 (Version 1)
Quarter: 2017Q1

REPORT INFORMATION
  Report Type: Spontaneous
  Country: IT (occurrence: IT)
  Receive Date: 20170316
  Receipt Date: 20170316
  Transmission Date: 20170428
  Serious: Yes (Hospitalization, Other)
  Sender: FDA-Public Use
  Company Number: PHHY2017IT037198

PATIENT
  Age: 64 Year
  Sex: Male

DRUGS (2)
  1. VOLTFAST [Suspect]
     Active Substance: DICLOFENAC POTASSIUM
     Indication: ARTHRALGIA
     Dosage: 1 DF, QD
     Route: 048
     Dates: start: 20161220, end: 20170107
  2. DONA (GLUCOSAMINE SULFATE SODIUM CHLORIDE) [Suspect]
     Active Substance: GLUCOSAMINE SULFATE SODIUM CHLORIDE
     Indication: ARTHRALGIA
     Dosage: 1 DF, QD
     Route: 048
     Dates: start: 20161220, end: 20170107

REACTIONS (4)
  - Tubulointerstitial nephritis [Unknown]
  - Eosinophil count decreased [Unknown]
  - Eosinophil count increased [Unknown]
  - Acute kidney injury [Recovering/Resolving]

NARRATIVE: CASE EVENT DATE: 20170107
